FAERS Safety Report 5951447-3 (Version None)
Quarter: 2008Q4

REPORT INFORMATION
  Report Type: 
  Country: None (occurrence: None)
  Receive Date: 20081111
  Receipt Date: 20081111
  Transmission Date: 20090506
  Serious: No
  Sender: FDA-Public Use
  Company Number: None

PATIENT
  Age: 53 Year
  Sex: Male

DRUGS (1)
  1. TRAMADOL HCL [Suspect]
     Dates: start: 20070912, end: 20071107

REACTIONS (2)
  - ANOREXIA [None]
  - WEIGHT DECREASED [None]
